FAERS Safety Report 6756877-8 (Version None)
Quarter: 2010Q2

REPORT INFORMATION
  Report Type: 
  Country: None (occurrence: None)
  Receive Date: 20100604
  Receipt Date: 20100528
  Transmission Date: 20101027
  Serious: Yes (Hospitalization)
  Sender: FDA-Public Use
  Company Number: DE-JNJCH-2010013291

PATIENT
  Age: 33 Year
  Sex: Female

DRUGS (1)
  1. CETIRIZINE HCL AND PSEUDOEPHEDRINE [Suspect]
     Indication: DRUG USE FOR UNKNOWN INDICATION
     Dosage: TEXT:NI
     Route: 065

REACTIONS (1)
  - RENAL FAILURE [None]
